FAERS Safety Report 6374763-2 (Version None)
Quarter: 2009Q3

REPORT INFORMATION
  Report Type: 
  Country: None (occurrence: None)
  Receive Date: 20090924
  Receipt Date: 20090915
  Transmission Date: 20100115
  Serious: Yes (Other)
  Sender: FDA-Public Use
  Company Number: PHHY2009CN39836

PATIENT
  Age: 57 Year
  Sex: Male

DRUGS (8)
  1. CARBAMAZEPINE [Suspect]
     Indication: DEPRESSION
     Dosage: UNK
  2. DOXEPIN HYDROCHLORIDE [Concomitant]
     Indication: DEPRESSION
  3. ST. JOHN'S WORT [Concomitant]
     Indication: DEPRESSION
  4. CLONAZEPAM [Concomitant]
     Indication: DEPRESSION
  5. PERPHENAZINE [Concomitant]
     Indication: DEPRESSION
  6. BENZHEXOL HYDROCHLORIDE [Concomitant]
     Indication: DEPRESSION
  7. CHLORPROTHIXENE [Concomitant]
     Indication: DEPRESSION
  8. OXALIPLATIN [Concomitant]
     Indication: DEPRESSION
     Dosage: UNK

REACTIONS (5)
  - DYSKINESIA [None]
  - HEAD TITUBATION [None]
  - MUSCLE SPASMS [None]
  - MUSCLE TWITCHING [None]
  - TARDIVE DYSKINESIA [None]
